FAERS Safety Report 10668656 (Version 1)
Quarter: 2014Q4

REPORT INFORMATION
  Report Type: Spontaneous
  Country: US (occurrence: US)
  Receive Date: 20141222
  Receipt Date: 20141222
  Transmission Date: 20150529
  Serious: No
  Sender: FDA-Public Use
  Company Number: US-ASTRAZENECA-2013SE92592

PATIENT
  Age: 46 Year
  Sex: Female
  Weight: 50.8 kg

DRUGS (3)
  1. PLENDIL [Suspect]
     Active Substance: FELODIPINE
     Indication: BLOOD PRESSURE ABNORMAL
     Route: 048
  2. PLENDIL [Suspect]
     Active Substance: FELODIPINE
     Indication: BLOOD PRESSURE ABNORMAL
     Dosage: GENERIC 5 MG DAILLY
     Route: 065
  3. VASOTEC [Concomitant]
     Active Substance: ENALAPRIL MALEATE
     Indication: BLOOD PRESSURE ABNORMAL

REACTIONS (4)
  - Malaise [Unknown]
  - Drug ineffective [Unknown]
  - Headache [Unknown]
  - Blood pressure increased [Unknown]
